FAERS Safety Report 8644087 (Version 2)
Quarter: 2012Q4

REPORT INFORMATION
  Report Type: 
  Country: DE (occurrence: DE)
  Receive Date: 20120629
  Receipt Date: 20120830
  Transmission Date: 20130627
  Serious: Yes (Other)
  Sender: FDA-Public Use
  Company Number: DE-BAYER-2012-061816

PATIENT
  Age: 38 Year
  Sex: Female
  Weight: 85 kg

DRUGS (3)
  1. MIRENA [Suspect]
     Indication: CONTRACEPTION
     Dosage: 20 mcg/24hr, CONT
     Route: 015
     Dates: start: 20110803, end: 20120628
  2. AVONEX [Concomitant]
  3. DACLIZUMAB [Concomitant]

REACTIONS (10)
  - Multiple sclerosis relapse [None]
  - Hypoaesthesia [None]
  - Hypoaesthesia [None]
  - Metrorrhagia [Not Recovered/Not Resolved]
  - Ovarian cyst [Recovering/Resolving]
  - Metrorrhagia [Not Recovered/Not Resolved]
  - Paraesthesia [None]
  - Loss of libido [None]
  - Hypoaesthesia [None]
  - Paraesthesia [None]
